FAERS Safety Report 15221633 (Version 1)
Quarter: 2018Q3

REPORT INFORMATION
  Report Type: Spontaneous
  Country: US (occurrence: US)
  Receive Date: 20180731
  Receipt Date: 20180731
  Transmission Date: 20181010
  Serious: No
  Sender: FDA-Public Use
  Company Number: US-BAYER-2018-139507

PATIENT
  Age: 84 Year
  Sex: Female
  Weight: 59 kg

DRUGS (1)
  1. MIRALAX [Suspect]
     Active Substance: POLYETHYLENE GLYCOL 3350
     Indication: GASTROINTESTINAL DISORDER
     Dosage: HALF A CAPFUL DOSE
     Route: 048
     Dates: end: 20180723

REACTIONS (3)
  - Underdose [Unknown]
  - Off label use [Unknown]
  - Product prescribing issue [Unknown]
